FAERS Safety Report 9865908 (Version 1)
Quarter: 2014Q1

REPORT INFORMATION
  Report Type: Spontaneous
  Country: US (occurrence: US)
  Receive Date: 20140203
  Receipt Date: 20140203
  Transmission Date: 20141002
  Serious: No
  Sender: FDA-Public Use
  Company Number: US-ALLERGAN-1312473US

PATIENT
  Age: 68 Year
  Sex: Female

DRUGS (4)
  1. RESTASIS [Suspect]
     Indication: DRY EYE
     Dosage: 2 UNK, UNK
     Route: 047
  2. REFRESH OPTIVE [Concomitant]
     Indication: DRY EYE
  3. REFRESH OPTIVE ADVANCED SENSITIVE [Concomitant]
     Indication: DRY EYE
  4. REFRESH DROPS NOS [Concomitant]
     Indication: DRY EYE

REACTIONS (1)
  - Eye irritation [Unknown]
